FAERS Safety Report 12723597 (Version 1)
Quarter: 2016Q3

REPORT INFORMATION
  Report Type: Spontaneous
  Country: US (occurrence: US)
  Receive Date: 20160908
  Receipt Date: 20160908
  Transmission Date: 20161109
  Serious: No
  Sender: FDA-Public Use
  Company Number: US-LEO PHARMA-243791

PATIENT
  Age: 62 Year
  Sex: Female

DRUGS (1)
  1. PICATO [Suspect]
     Active Substance: INGENOL MEBUTATE
     Indication: ACTINIC KERATOSIS
     Route: 061
     Dates: start: 20160822, end: 20160822

REACTIONS (10)
  - Drug administered at inappropriate site [Unknown]
  - Palpitations [Recovered/Resolved]
  - Application site pain [Recovered/Resolved]
  - Application site scab [Not Recovered/Not Resolved]
  - Incorrect drug administration duration [Unknown]
  - Insomnia [Recovered/Resolved]
  - Application site vesicles [Recovered/Resolved]
  - Application site swelling [Recovered/Resolved]
  - Application site discharge [Recovered/Resolved]
  - Headache [Recovered/Resolved]

NARRATIVE: CASE EVENT DATE: 20160822
